FAERS Safety Report 9578923 (Version 2)
Quarter: 2013Q4

REPORT INFORMATION
  Report Type: Spontaneous
  Country: US (occurrence: US)
  Receive Date: 20131001
  Receipt Date: 20131001
  Transmission Date: 20140711
  Serious: No
  Sender: FDA-Public Use
  Company Number: US-AMGEN-USASP2013003626

PATIENT
  Age: 42 Year
  Sex: Male
  Weight: 90.7 kg

DRUGS (4)
  1. ENBREL [Suspect]
     Indication: PSORIASIS
     Dosage: 50 MG, QWK
     Route: 058
  2. DOVONEX [Concomitant]
     Dosage: 0.005 %, UNK
  3. CLOBETASOL [Concomitant]
     Dosage: 0.05 %, UNK
  4. SORIATANE [Concomitant]
     Dosage: 22.5 MG, UNK

REACTIONS (2)
  - Hepatic enzyme increased [Unknown]
  - Psoriasis [Unknown]
